FAERS Safety Report 4993377-X (Version None)
Quarter: 2006Q2

REPORT INFORMATION
  Report Type: 
  Country: None (occurrence: None)
  Receive Date: 20060505
  Receipt Date: 20060426
  Transmission Date: 20061013
  Serious: Yes (Other)
  Sender: FDA-Public Use
  Company Number: CA-JNJFOC-20060500757

PATIENT

DRUGS (1)
  1. REMICADE [Suspect]

REACTIONS (1)
  - PREMATURE BABY [None]
